FAERS Safety Report 8604838-6 (Version None)
Quarter: 2012Q3

REPORT INFORMATION
  Report Type: 
  Country: None (occurrence: None)
  Receive Date: 20120820
  Receipt Date: 20120813
  Transmission Date: 20120928
  Serious: Yes (Other)
  Sender: FDA-Public Use
  Company Number: US-BAYER-2012-084142

PATIENT
  Age: 67 Year
  Sex: Female
  Weight: 63 kg

DRUGS (7)
  1. VITAMIN D [Concomitant]
  2. SOLGAR FORMULA VM-75 [Concomitant]
  3. ASCORBIC ACID [Concomitant]
  4. DIOVAN [Concomitant]
  5. CALCIUM [Concomitant]
  6. ASPIRIN [Suspect]
     Indication: HEADACHE
     Dosage: 1 UNK, UNK
     Route: 048
     Dates: start: 20120811, end: 20120811
  7. VITAMIN B-12 [Concomitant]

REACTIONS (3)
  - BURN OESOPHAGEAL [None]
  - DYSPEPSIA [None]
  - PAIN [None]
